FAERS Safety Report 6274251-8 (Version None)
Quarter: 2009Q3

REPORT INFORMATION
  Report Type: 
  Country: None (occurrence: None)
  Receive Date: 20090720
  Receipt Date: 20090715
  Transmission Date: 20100115
  Serious: Yes (Other)
  Sender: FDA-Public Use
  Company Number: US-JNJFOC-20090705826

PATIENT

DRUGS (1)
  1. LEVAQUIN [Suspect]
     Indication: CYSTITIS
     Route: 065

REACTIONS (3)
  - LIGAMENT DISORDER [None]
  - LIGAMENT PAIN [None]
  - MUSCULAR WEAKNESS [None]
